FAERS Safety Report 5457103-2 (Version None)
Quarter: 2007Q3

REPORT INFORMATION
  Report Type: 
  Country: None (occurrence: None)
  Receive Date: 20070918
  Receipt Date: 20070110
  Transmission Date: 20080115
  Serious: Yes (Other)
  Sender: FDA-Public Use
  Company Number: US-ASTRAZENECA-2007UW00547

PATIENT
  Age: 44 Year
  Sex: Female
  Weight: 167.8 kg

DRUGS (11)
  1. SEROQUEL [Suspect]
     Indication: BIPOLAR DISORDER
     Route: 048
  2. SEROQUEL [Suspect]
     Indication: PSYCHOTIC DISORDER
     Route: 048
  3. DILANTIN [Concomitant]
  4. COUMADIN [Concomitant]
  5. COUMADIN [Concomitant]
  6. LORTAB [Concomitant]
  7. ZOLOFT [Concomitant]
  8. LOTREL [Concomitant]
     Dosage: 1 CAP DAILY
  9. KLONOPIN [Concomitant]
  10. ALBUTEROL [Concomitant]
     Dosage: 1 CAP TID
  11. ALBUTEROL [Concomitant]
     Dosage: INHALER 2 PUFF QD, NEBULIZER TID
     Route: 055

REACTIONS (1)
  - CONVULSION [None]
